FAERS Safety Report 4473899-0 (Version None)
Quarter: 2004Q4

REPORT INFORMATION
  Report Type: 
  Country: None (occurrence: None)
  Receive Date: 20041008
  Receipt Date: 20040915
  Transmission Date: 20050328
  Serious: Yes (Life-Threatening, Hospitalization)
  Sender: FDA-Public Use
  Company Number: USA040978292

PATIENT
  Sex: Female
  Weight: 105 kg

DRUGS (2)
  1. ZYPREXA [Suspect]
     Indication: SCHIZOPHRENIA
     Dates: start: 19990101, end: 20040401
  2. RISPERIDONE [Concomitant]

REACTIONS (4)
  - BLOOD TEST ABNORMAL [None]
  - DIABETES MELLITUS [None]
  - HAEMATOCHEZIA [None]
  - WEIGHT INCREASED [None]
